FAERS Safety Report 10143564 (Version 1)
Quarter: 2014Q2

REPORT INFORMATION
  Report Type: Spontaneous
  Country: US (occurrence: US)
  Receive Date: 20140430
  Receipt Date: 20140430
  Transmission Date: 20141212
  Serious: No
  Sender: FDA-Public Use
  Company Number: US-009507513-1404USA014970

PATIENT
  Sex: Male

DRUGS (3)
  1. CLARITIN LIQUIGELS [Suspect]
     Indication: PRODUCT USED FOR UNKNOWN INDICATION
     Dosage: ALTERNATE TAKING THEM
     Route: 048
  2. CLARITIN-D-24 [Suspect]
     Indication: PRODUCT USED FOR UNKNOWN INDICATION
     Dosage: ALTERNATE TAKING THEM
     Route: 048
  3. NASONEX [Concomitant]

REACTIONS (2)
  - Accidental overdose [Unknown]
  - Off label use [Unknown]
